FAERS Safety Report 18131080 (Version 1)
Quarter: 2020Q3

REPORT INFORMATION
  Report Type: Spontaneous
  Country: GB (occurrence: GB)
  Receive Date: 20200810
  Receipt Date: 20200810
  Transmission Date: 20201103
  Serious: Yes (Hospitalization, Disabling, Other)
  Sender: FDA-Public Use
  Company Number: GB-PFIZER INC-2020300084

PATIENT
  Age: 25 Year
  Sex: Female
  Weight: 80 kg

DRUGS (1)
  1. DIFLUCAN [Suspect]
     Active Substance: FLUCONAZOLE
     Indication: CANDIDA INFECTION
     Dosage: 150 MG
     Route: 048
     Dates: start: 201807, end: 202004

REACTIONS (7)
  - Skin hyperpigmentation [Not Recovered/Not Resolved]
  - Fixed eruption [Recovered/Resolved with Sequelae]
  - Pruritus [Unknown]
  - Pain [Unknown]
  - Skin lesion [Unknown]
  - Skin swelling [Recovering/Resolving]
  - Burning sensation [Unknown]

NARRATIVE: CASE EVENT DATE: 201910
